FAERS Safety Report 18484797 (Version 1)
Quarter: 2020Q4

REPORT INFORMATION
  Report Type: Spontaneous
  Country: US (occurrence: US)
  Receive Date: 20201109
  Receipt Date: 20201109
  Transmission Date: 20210114
  Serious: Yes (Death)
  Sender: FDA-Public Use
  Company Number: None

PATIENT
  Age: 64 Year
  Sex: Male
  Weight: 71.7 kg

DRUGS (10)
  1. REMDESIVIR. [Suspect]
     Active Substance: REMDESIVIR
     Indication: COVID-19
     Route: 042
     Dates: start: 20201101, end: 20201101
  2. SENNA-DOCUSATE [Concomitant]
     Active Substance: DOCUSATE SODIUM\SENNOSIDES
     Dates: start: 20201031, end: 20201031
  3. CARVEDILOL. [Concomitant]
     Active Substance: CARVEDILOL
     Dates: start: 20201031, end: 20201031
  4. ACETAMINOPHEN. [Concomitant]
     Active Substance: ACETAMINOPHEN
     Dates: start: 20201031, end: 20201031
  5. LOSARTAN. [Concomitant]
     Active Substance: LOSARTAN
     Dates: start: 20201031, end: 20201031
  6. ATORVASTATIN [Concomitant]
     Active Substance: ATORVASTATIN
     Dates: start: 20201031, end: 20201031
  7. HEPARIN INFUSION [Concomitant]
     Dates: start: 20201031, end: 20201101
  8. FUROSEMIDE. [Concomitant]
     Active Substance: FUROSEMIDE
     Dates: start: 20201031, end: 20201031
  9. DEXAMETHASONE. [Concomitant]
     Active Substance: DEXAMETHASONE
     Dates: start: 20201101, end: 20201101
  10. ASPIRIN. [Concomitant]
     Active Substance: ASPIRIN
     Dates: start: 20201031, end: 20201031

REACTIONS (3)
  - Ventricular fibrillation [None]
  - Vein disorder [None]
  - Unresponsive to stimuli [None]

NARRATIVE: CASE EVENT DATE: 20201101
